FAERS Safety Report 7852593-X (Version None)
Quarter: 2011Q4

REPORT INFORMATION
  Report Type: 
  Country: None (occurrence: None)
  Receive Date: 20111026
  Receipt Date: 20110405
  Transmission Date: 20120403
  Serious: Yes (Other)
  Sender: FDA-Public Use
  Company Number: US-GLAXOSMITHKLINE-A0922252A

PATIENT
  Age: 47 Year
  Sex: Male

DRUGS (1)
  1. AVANDIA [Suspect]
     Indication: DIABETES MELLITUS
     Dosage: 4MG UNKNOWN
     Route: 048
     Dates: start: 20020201, end: 20080701

REACTIONS (6)
  - CARDIAC DISORDER [None]
  - BLINDNESS [None]
  - MACULAR OEDEMA [None]
  - PALPITATIONS [None]
  - RETINAL VEIN OCCLUSION [None]
  - MYOCARDIAL INFARCTION [None]
